FAERS Safety Report 5865918-1 (Version None)
Quarter: 2008Q3

REPORT INFORMATION
  Report Type: 
  Country: None (occurrence: None)
  Receive Date: 20080829
  Receipt Date: 20080815
  Transmission Date: 20090109
  Serious: Yes (Hospitalization)
  Sender: FDA-Public Use
  Company Number: JP-GENENTECH-266766

PATIENT
  Sex: Female
  Weight: 55 kg

DRUGS (3)
  1. TRASTUZUMAB [Suspect]
     Indication: BREAST CANCER METASTATIC
     Dosage: 242 MG, QD
     Route: 041
     Dates: start: 20071106
  2. TAXOTERE [Suspect]
     Indication: BREAST CANCER METASTATIC
     Dosage: 92 MG, QD
     Route: 041
     Dates: start: 20080311
  3. ZOMETA [Suspect]
     Indication: METASTASES TO BONE
     Dosage: 4 MG, 1/MONTH
     Route: 041
     Dates: start: 20080304

REACTIONS (3)
  - DEPRESSED LEVEL OF CONSCIOUSNESS [None]
  - NEUTROPHIL COUNT DECREASED [None]
  - PNEUMONIA [None]
